FAERS Safety Report 26144022 (Version 1)
Quarter: 2025Q4

REPORT INFORMATION
  Report Type: Spontaneous
  Country: US (occurrence: US)
  Receive Date: 20251211
  Receipt Date: 20251211
  Transmission Date: 20260118
  Serious: Yes (Life-Threatening, Hospitalization)
  Sender: TEVA
  Company Number: US-TEVA-VS-3399301

PATIENT
  Age: 63 Year
  Sex: Male

DRUGS (1)
  1. BACLOFEN [Suspect]
     Active Substance: BACLOFEN
     Indication: Quadriplegia
     Dosage: PUMP; HE HAD 10% OF HIS BACLOFEN PUMP VOLUME UNACCOUNTED FOR INTRA-OPERATIVELY DUE TO BACLOFEN OV...
     Route: 037

REACTIONS (8)
  - Bradycardia [Unknown]
  - Renal failure [Unknown]
  - Acute myocardial infarction [Unknown]
  - Respiratory failure [Unknown]
  - Cardiac arrest [Unknown]
  - Overdose [Unknown]
  - Product administration error [Unknown]
  - Cardiac failure [Unknown]
